FAERS Safety Report 18106623 (Version 2)
Quarter: 2020Q3

REPORT INFORMATION
  Report Type: Spontaneous
  Country: IL (occurrence: IL)
  Receive Date: 20200804
  Receipt Date: 20200805
  Transmission Date: 20201103
  Serious: Yes (Hospitalization)
  Sender: FDA-Public Use
  Company Number: IL-SA-2020SA114467

PATIENT

DRUGS (14)
  1. GLUCOMIN [Concomitant]
     Active Substance: METFORMIN HYDROCHLORIDE
  2. METHOTREXATE. [Concomitant]
     Active Substance: METHOTREXATE
  3. NUCALA [Concomitant]
     Active Substance: MEPOLIZUMAB
  4. PREDNISONE. [Concomitant]
     Active Substance: PREDNISONE
     Dosage: 40 MG, QD
  5. FASENRA [Concomitant]
     Active Substance: BENRALIZUMAB
  6. RELVAR [Concomitant]
     Active Substance: FLUTICASONE FUROATE\VILANTEROL TRIFENATATE
  7. SPIRIVA [Concomitant]
     Active Substance: TIOTROPIUM BROMIDE MONOHYDRATE
  8. DUPIXENT [Suspect]
     Active Substance: DUPILUMAB
     Indication: ASTHMA
     Dosage: 600 MG, 1X
     Dates: start: 20200419, end: 20200419
  9. NEXIUM [Concomitant]
     Active Substance: ESOMEPRAZOLE MAGNESIUM
  10. FOSTER [Concomitant]
     Active Substance: BECLOMETHASONE\FORMOTEROL
  11. BUCORT [Concomitant]
  12. PREDNISONE. [Concomitant]
     Active Substance: PREDNISONE
     Indication: ASTHMA
     Dosage: 30 MG
  13. VENTOLIN [Concomitant]
     Active Substance: ALBUTEROL SULFATE
     Dosage: UNK UNK, PRN
  14. INSULIN [Concomitant]
     Active Substance: INSULIN NOS

REACTIONS (5)
  - Oedema [Unknown]
  - Blood pressure increased [Unknown]
  - Erythema [Recovered/Resolved]
  - Urticaria [Recovered/Resolved]
  - Rash [Recovered/Resolved]

NARRATIVE: CASE EVENT DATE: 20200419
